FAERS Safety Report 14525088 (Version 6)
Quarter: 2018Q4

REPORT INFORMATION
  Report Type: Report from Study
  Country: FR (occurrence: FR)
  Receive Date: 20180213
  Receipt Date: 20181119
  Transmission Date: 20190204
  Serious: Yes (Death, Life-Threatening, Hospitalization, Disabling, Other)
  Sender: FDA-Public Use
  Company Number: PHHY2017FR180099

PATIENT
  Age: 67 Year
  Sex: Male
  Weight: 90 kg

DRUGS (5)
  1. SUNITINIB [Suspect]
     Active Substance: SUNITINIB
     Indication: PANCREATIC NEUROENDOCRINE TUMOUR METASTATIC
     Dosage: 25 MG, QD
     Route: 065
     Dates: start: 20150813
  2. CREON [Concomitant]
     Active Substance: PANCRELIPASE AMYLASE\PANCRELIPASE LIPASE\PANCRELIPASE PROTEASE
     Indication: STEATORRHOEA
     Dosage: 2 PILLS, THRICE A DAY
     Route: 048
     Dates: start: 20150813, end: 201802
  3. AFINITOR [Suspect]
     Active Substance: EVEROLIMUS
     Indication: PANCREATIC NEUROENDOCRINE TUMOUR METASTATIC
     Dosage: 10 MG, QD
     Route: 065
     Dates: start: 20170904, end: 20170910
  4. SUNITINIB [Suspect]
     Active Substance: SUNITINIB
     Dosage: 37.5 MG, QD
     Route: 065
     Dates: start: 20160425, end: 20170903
  5. SANDOSTATIN LAR DEPOT [Suspect]
     Active Substance: OCTREOTIDE ACETATE
     Indication: PANCREATIC NEUROENDOCRINE TUMOUR METASTATIC
     Dosage: 30 MG, QMO (ONCE IN 28 DAYS)
     Route: 030
     Dates: start: 20150813

REACTIONS (17)
  - Liver disorder [Fatal]
  - Acute kidney injury [Fatal]
  - Oedema [Recovered/Resolved]
  - Swelling [Recovered/Resolved]
  - General physical health deterioration [Fatal]
  - Pancreatic neuroendocrine tumour metastatic [Unknown]
  - Malignant neoplasm progression [Unknown]
  - Oedema [Unknown]
  - Abdominal pain [Recovered/Resolved]
  - Hypersensitivity [Unknown]
  - Flushing [Unknown]
  - Erythema [Recovered/Resolved]
  - Systemic inflammatory response syndrome [Recovered/Resolved]
  - Rash [Unknown]
  - Mucosal inflammation [Recovered/Resolved]
  - Urticaria [Recovered/Resolved]
  - Hepatocellular injury [Recovering/Resolving]

NARRATIVE: CASE EVENT DATE: 20170704
